FAERS Safety Report 14371491 (Version 1)
Quarter: 2018Q1

REPORT INFORMATION
  Report Type: Spontaneous
  Country: CZ (occurrence: CZ)
  Receive Date: 20180110
  Receipt Date: 20180110
  Transmission Date: 20180509
  Serious: Yes (Death, Other)
  Sender: FDA-Public Use
  Company Number: CZ-TEVA-2018-CZ-843030

PATIENT
  Age: 63 Year
  Sex: Male

DRUGS (1)
  1. DACARBAZINE. [Suspect]
     Active Substance: DACARBAZINE
     Indication: DIFFUSE LARGE B-CELL LYMPHOMA
     Dosage: 4 SERIES OF HD DTIC
     Route: 042
     Dates: start: 2016, end: 2016

REACTIONS (3)
  - Epilepsy [Not Recovered/Not Resolved]
  - Drug effect variable [Not Recovered/Not Resolved]
  - Metastases to central nervous system [Not Recovered/Not Resolved]

NARRATIVE: CASE EVENT DATE: 2016
